FAERS Safety Report 7508813-4 (Version None)
Quarter: 2011Q2

REPORT INFORMATION
  Report Type: 
  Country: None (occurrence: None)
  Receive Date: 20110527
  Receipt Date: 20091120
  Transmission Date: 20111010
  Serious: Yes (Other)
  Sender: FDA-Public Use
  Company Number: US-BAYER-200940972NA

PATIENT
  Age: 48 Year
  Sex: Male
  Weight: 62 kg

DRUGS (6)
  1. POTASSIUM CHLORIDE [Concomitant]
     Dosage: UNK
     Route: 042
     Dates: start: 20030307, end: 20030307
  2. VERSED [Concomitant]
     Dosage: UNK
     Dates: start: 20030307, end: 20030307
  3. TRASYLOL [Suspect]
     Indication: CORONARY ARTERY BYPASS
     Dosage: UNK
     Dates: start: 20030306
  4. VANCOMYCIN [Concomitant]
     Dosage: 1 G, UNK
     Route: 042
     Dates: start: 20030307, end: 20030307
  5. HEPARIN [Concomitant]
     Dosage: 10,000 UNITS BYPASS
     Route: 042
     Dates: start: 20030307, end: 20030307
  6. NITROGLYCERIN [Concomitant]
     Dosage: UNK
     Route: 042
     Dates: start: 20030307, end: 20030307

REACTIONS (12)
  - INJURY [None]
  - ANHEDONIA [None]
  - MULTI-ORGAN FAILURE [None]
  - UNEVALUABLE EVENT [None]
  - FEAR [None]
  - ANXIETY [None]
  - DISABILITY [None]
  - PAIN [None]
  - DEPRESSION [None]
  - RENAL INJURY [None]
  - PSYCHIATRIC SYMPTOM [None]
  - RENAL FAILURE [None]
